APPROVED DRUG PRODUCT: CLONAZEPAM
Active Ingredient: CLONAZEPAM
Strength: 1MG
Dosage Form/Route: TABLET;ORAL
Application: A074964 | Product #002
Applicant: WATSON LABORATORIES INC
Approved: Dec 30, 1997 | RLD: No | RS: No | Type: DISCN